FAERS Safety Report 11343174 (Version 1)
Quarter: 2015Q3

REPORT INFORMATION
  Report Type: Report from Study
  Country: US (occurrence: US)
  Receive Date: 20150806
  Receipt Date: 20150806
  Transmission Date: 20151125
  Serious: No
  Sender: FDA-Public Use
  Company Number: PHEH2015US009514

PATIENT
  Sex: Male

DRUGS (1)
  1. VALSARTAN+SIMVASTATIN [Suspect]
     Active Substance: SIMVASTATIN\VALSARTAN
     Indication: PRODUCT USED FOR UNKNOWN INDICATION
     Dosage: 5/160 (UNIT NOT REPORTED), QD
     Route: 065

REACTIONS (1)
  - Feeling abnormal [Unknown]
